FAERS Safety Report 5317991-7 (Version None)
Quarter: 2007Q2

REPORT INFORMATION
  Report Type: 
  Country: None (occurrence: None)
  Receive Date: 20070507
  Receipt Date: 20070419
  Transmission Date: 20071010
  Serious: Yes (Death)
  Sender: FDA-Public Use
  Company Number: DE-PURDUE-DEU_2007_0003270

PATIENT
  Age: 94 Year
  Sex: Female

DRUGS (1)
  1. MSI 100 MG MUNDIPHARMA [Suspect]
     Indication: PAIN
     Dosage: 100 MG, SINGLE
     Route: 058
     Dates: start: 20070419, end: 20070419

REACTIONS (3)
  - DEATH [None]
  - MEDICATION ERROR [None]
  - PLATYPNOEA [None]
